FAERS Safety Report 6762434-X (Version None)
Quarter: 2010Q2

REPORT INFORMATION
  Report Type: 
  Country: None (occurrence: None)
  Receive Date: 20100609
  Receipt Date: 20100604
  Transmission Date: 20101027
  Serious: Yes (Life-Threatening)
  Sender: FDA-Public Use
  Company Number: SK-ROCHE-707946

PATIENT
  Sex: Female
  Weight: 57.4 kg

DRUGS (6)
  1. TOCILIZUMAB [Suspect]
     Indication: RHEUMATOID ARTHRITIS
     Dosage: DOSAGE FORM REPORTED AS INFUSIONS.
     Route: 042
     Dates: start: 20060511, end: 20100604
  2. TOCILIZUMAB [Suspect]
     Dosage: PATIENT PREVIOUSLY ENROLLED IN STUDY WA17822 AND RECEIVED TOCILIZUMAB.
     Route: 042
  3. METHOTREXATE [Suspect]
     Indication: DRUG USE FOR UNKNOWN INDICATION
     Route: 065
     Dates: start: 20041217
  4. FOLIC ACID [Concomitant]
     Dates: start: 20041217
  5. DICLOFENAC [Concomitant]
     Dates: start: 20041217
  6. LEVOTHYROXINE SODIUM [Concomitant]
     Dosage: TDD: 100 UGR
     Dates: start: 20010821

REACTIONS (1)
  - BREAST CANCER IN SITU [None]
